FAERS Safety Report 13645532 (Version 3)
Quarter: 2018Q2

REPORT INFORMATION
  Report Type: Report from Study
  Country: DE (occurrence: DE)
  Receive Date: 20170613
  Receipt Date: 20180618
  Transmission Date: 20180711
  Serious: Yes (Hospitalization)
  Sender: FDA-Public Use
  Company Number: DE-ROCHE-1949354

PATIENT
  Age: 51 Year
  Sex: Female

DRUGS (7)
  1. PANTOPRAZOL [Concomitant]
     Active Substance: PANTOPRAZOLE SODIUM
     Route: 065
  2. L-THYROXIN [Concomitant]
     Active Substance: LEVOTHYROXINE SODIUM
     Route: 065
  3. CARVEDILOL. [Concomitant]
     Active Substance: CARVEDILOL
     Route: 065
  4. RITUXIMAB. [Suspect]
     Active Substance: RITUXIMAB
     Indication: RHEUMATOID ARTHRITIS
     Dosage: HER LAST DOCUMENTED ADMINISTRATIONS OF RITUXIMAB TOOK PLACE ON 20/APR/2016 AND ON 25/NOV/2016
     Route: 042
     Dates: end: 20161115
  5. DEKRISTOL [Concomitant]
     Active Substance: CHOLECALCIFEROL
     Route: 065
  6. PREDNISOLON [Concomitant]
     Active Substance: PREDNISOLONE
     Route: 065
  7. FALITHROM [Concomitant]
     Active Substance: PHENPROCOUMON

REACTIONS (1)
  - Dizziness [Not Recovered/Not Resolved]

NARRATIVE: CASE EVENT DATE: 201602
